FAERS Safety Report 19700287 (Version 1)
Quarter: 2021Q3

REPORT INFORMATION
  Report Type: Spontaneous
  Country: JP (occurrence: JP)
  Receive Date: 20210813
  Receipt Date: 20210813
  Transmission Date: 20211014
  Serious: Yes (Hospitalization)
  Sender: FDA-Public Use
  Company Number: JP-PFIZER INC-202101025378

PATIENT
  Age: 74 Year
  Sex: Female

DRUGS (4)
  1. PREDNISOLONE. [Concomitant]
     Active Substance: PREDNISOLONE
     Dosage: 1 MG, DAILY
  2. METHOTREXATE SODIUM. [Suspect]
     Active Substance: METHOTREXATE SODIUM
     Indication: RHEUMATOID ARTHRITIS
     Dosage: 4 MG/ WEEK
     Route: 048
     Dates: start: 1999
  3. METHOTREXATE SODIUM. [Suspect]
     Active Substance: METHOTREXATE SODIUM
     Dosage: 6 MG/ WEEK
     Route: 048
     Dates: start: 2006
  4. PREDNISOLONE. [Concomitant]
     Active Substance: PREDNISOLONE
     Dosage: UNK

REACTIONS (9)
  - Lymphoma [Unknown]
  - Weight decreased [Unknown]
  - Abdominal wall mass [Recovered/Resolved]
  - Lymphadenopathy [Unknown]
  - Uterine mass [Recovered/Resolved]
  - Decreased appetite [Unknown]
  - Lymphoproliferative disorder [Recovering/Resolving]
  - Pancytopenia [Unknown]
  - Abdominal mass [Recovered/Resolved]

NARRATIVE: CASE EVENT DATE: 200907
